FAERS Safety Report 22596957 (Version 1)
Quarter: 2023Q2

REPORT INFORMATION
  Report Type: Spontaneous
  Country: US (occurrence: US)
  Receive Date: 20230613
  Receipt Date: 20230613
  Transmission Date: 20230722
  Serious: No
  Sender: FDA-Public Use
  Company Number: US-INCYTE CORPORATION-2023IN005942

PATIENT

DRUGS (2)
  1. JAKAFI [Suspect]
     Active Substance: RUXOLITINIB
     Indication: Gastroenteritis
     Dosage: 5 MILLIGRAM, BID
     Route: 048
     Dates: start: 20230529
  2. JAKAFI [Suspect]
     Active Substance: RUXOLITINIB
     Indication: B-cell lymphoma

REACTIONS (1)
  - Off label use [Unknown]

NARRATIVE: CASE EVENT DATE: 20230529
